FAERS Safety Report 4652730-4 (Version None)
Quarter: 2005Q2

REPORT INFORMATION
  Report Type: 
  Country: None (occurrence: None)
  Receive Date: 20050502
  Receipt Date: 20050425
  Transmission Date: 20051028
  Serious: Yes (Death)
  Sender: FDA-Public Use
  Company Number: 2005UW06422

PATIENT
  Age: 76 Year
  Sex: Male

DRUGS (3)
  1. CRESTOR [Suspect]
     Dosage: 10 MG QD PO
     Route: 048
     Dates: start: 20050401
  2. LISINOPRIL [Concomitant]
  3. NO MATCH [Concomitant]

REACTIONS (1)
  - PANCREATITIS [None]
